FAERS Safety Report 20610724 (Version 1)
Quarter: 2022Q1

REPORT INFORMATION
  Report Type: Report from Study
  Country: US (occurrence: US)
  Receive Date: 20220318
  Receipt Date: 20220318
  Transmission Date: 20220424
  Serious: No
  Sender: FDA-Public Use
  Company Number: US-NOVARTISTESTPH-NVSC2022US062281

PATIENT
  Age: 32 Year
  Sex: Female

DRUGS (1)
  1. DEXAMETHASONE [Suspect]
     Active Substance: DEXAMETHASONE
     Indication: Product used for unknown indication
     Dosage: UNK
     Route: 065

REACTIONS (7)
  - Cognitive disorder [Unknown]
  - General physical health deterioration [Unknown]
  - Fatigue [Unknown]
  - Feeling abnormal [Unknown]
  - Platelet count decreased [Unknown]
  - Anxiety [Unknown]
  - Drug ineffective [Unknown]
